FAERS Safety Report 4732629-5 (Version None)
Quarter: 2005Q3

REPORT INFORMATION
  Report Type: 
  Country: None (occurrence: None)
  Receive Date: 20050802
  Receipt Date: 20050802
  Transmission Date: 20060218
  Serious: Yes (Hospitalization)
  Sender: FDA-Public Use
  Company Number: None

PATIENT
  Age: 20 Year
  Sex: Male
  Weight: 116.5744 kg

DRUGS (1)
  1. CYTOXAN [Suspect]
     Indication: MEDULLOBLASTOMA
     Dosage: 2350 MG IV
     Route: 042
     Dates: start: 20050622, end: 20050623

REACTIONS (1)
  - FEBRILE NEUTROPENIA [None]
